FAERS Safety Report 9106024 (Version 1)
Quarter: 2013Q1

REPORT INFORMATION
  Report Type: Spontaneous
  Country: US (occurrence: US)
  Receive Date: 20130220
  Receipt Date: 20130220
  Transmission Date: 20140127
  Serious: Yes (Disabling)
  Sender: FDA-Public Use
  Company Number: US-ELI_LILLY_AND_COMPANY-US201302003270

PATIENT
  Sex: Male

DRUGS (1)
  1. HUMATROPE [Suspect]
     Indication: GROWTH HORMONE DEFICIENCY
     Dosage: 0.6 MG, QD
     Dates: start: 200803

REACTIONS (4)
  - Skeletal injury [Unknown]
  - Rotator cuff syndrome [Unknown]
  - Tendon injury [Unknown]
  - Exostosis [Unknown]
